FAERS Safety Report 8509103-3 (Version None)
Quarter: 2012Q3

REPORT INFORMATION
  Report Type: 
  Country: None (occurrence: None)
  Receive Date: 20120713
  Receipt Date: 20120703
  Transmission Date: 20120928
  Serious: Yes (Hospitalization)
  Sender: FDA-Public Use
  Company Number: US-GLAXOSMITHKLINE-A0842144A

PATIENT
  Age: 44 Year
  Sex: Male

DRUGS (10)
  1. STARLIX [Concomitant]
  2. POTASSIUM CHLORIDE [Concomitant]
  3. IMIPRAMINE HCL [Concomitant]
  4. AVANDIA [Suspect]
     Indication: TYPE 2 DIABETES MELLITUS
     Dosage: 4MG PER DAY
     Route: 065
  5. ATENOLOL [Concomitant]
  6. PROZAC [Concomitant]
  7. AVANDAMET [Suspect]
     Indication: TYPE 2 DIABETES MELLITUS
     Route: 065
  8. LOTREL [Concomitant]
  9. LASIX [Concomitant]
  10. LESCOL [Concomitant]

REACTIONS (3)
  - DYSPNOEA [None]
  - CARDIAC DISORDER [None]
  - CHEST PAIN [None]
